FAERS Safety Report 9304024 (Version 1)
Quarter: 2013Q2

REPORT INFORMATION
  Report Type: Spontaneous
  Country: JP (occurrence: JP)
  Receive Date: 20130522
  Receipt Date: 20130522
  Transmission Date: 20140414
  Serious: Yes (Death, Other)
  Sender: FDA-Public Use
  Company Number: PHHY2013JP050999

PATIENT
  Age: 74 Year
  Sex: Female

DRUGS (1)
  1. DOCETAXEL [Suspect]
     Indication: PAPILLARY THYROID CANCER
     Dosage: 25 MG/M2, QW

REACTIONS (2)
  - Accident [Fatal]
  - Neuropathy peripheral [Unknown]
